FAERS Safety Report 6594220-8 (Version None)
Quarter: 2010Q1

REPORT INFORMATION
  Report Type: 
  Country: None (occurrence: None)
  Receive Date: 20100222
  Receipt Date: 20100215
  Transmission Date: 20100710
  Serious: Yes (Death)
  Sender: FDA-Public Use
  Company Number: JP-BRISTOL-MYERS SQUIBB COMPANY-14564694

PATIENT
  Age: 80 Year
  Sex: Female
  Weight: 51 kg

DRUGS (5)
  1. ERBITUX [Suspect]
     Indication: COLON CANCER
     Route: 042
     Dates: start: 20081120, end: 20081120
  2. BEVACIZUMAB [Suspect]
     Indication: COLON CANCER
     Route: 042
     Dates: start: 20080221, end: 20080926
  3. RESTAMIN [Concomitant]
     Indication: PREMEDICATION
     Dosage: FORMULATION: RESTAMIN KOWA TABLET.
     Route: 048
     Dates: start: 20081120, end: 20081120
  4. DEXART [Concomitant]
     Indication: PREMEDICATION
     Route: 042
     Dates: start: 20081120, end: 20081120
  5. GRANISETRON [Concomitant]
     Indication: ANTIEMETIC SUPPORTIVE CARE
     Route: 042
     Dates: start: 20081120, end: 20081120

REACTIONS (1)
  - SUBARACHNOID HAEMORRHAGE [None]
